FAERS Safety Report 6732862-7 (Version None)
Quarter: 2010Q2

REPORT INFORMATION
  Report Type: 
  Country: None (occurrence: None)
  Receive Date: 20100519
  Receipt Date: 20100517
  Transmission Date: 20101027
  Serious: No
  Sender: FDA-Public Use
  Company Number: US-B.I. PHARMACEUTICALS,INC./RIDGEFIELD-2010-BP-05626BP

PATIENT
  Sex: Female

DRUGS (4)
  1. MIRAPEX [Suspect]
     Indication: RESTLESS LEGS SYNDROME
     Dosage: 0.75 MG
     Route: 048
     Dates: start: 20100501
  2. MIRAPEX [Suspect]
     Dosage: 0.5 MG
     Route: 048
     Dates: end: 20100501
  3. DURAGESIC-100 [Concomitant]
     Indication: FIBROMYALGIA
  4. VITAMIN B-12 [Concomitant]
     Indication: POST PROCEDURAL DISCOMFORT

REACTIONS (3)
  - DRUG INEFFECTIVE [None]
  - FIBROMYALGIA [None]
  - MUSCLE SPASMS [None]
